FAERS Safety Report 10763196 (Version 1)
Quarter: 2015Q1

REPORT INFORMATION
  Report Type: Spontaneous
  Country: GB (occurrence: GB)
  Receive Date: 20150204
  Receipt Date: 20150204
  Transmission Date: 20150721
  Serious: Yes (Hospitalization, Disabling)
  Sender: FDA-Public Use
  Company Number: PHFR2015GB001120

PATIENT
  Age: 46 Year
  Sex: Male
  Weight: 60 kg

DRUGS (5)
  1. CLOZARIL [Suspect]
     Active Substance: CLOZAPINE
     Indication: PSYCHOTIC DISORDER
     Dosage: 50 MG, QD (AT NIGHT))
     Route: 048
     Dates: start: 20140920, end: 20141001
  2. MIRTAZAPINE. [Concomitant]
     Active Substance: MIRTAZAPINE
     Indication: DEPRESSION
     Dosage: 45 MG, AT NIGHT
     Route: 048
     Dates: start: 20140806, end: 20140814
  3. VENLAFAXINE [Concomitant]
     Active Substance: VENLAFAXINE HYDROCHLORIDE
     Indication: DEPRESSION
     Dosage: (75 MG -375 MG), UNK
     Route: 048
     Dates: start: 20140807, end: 20141015
  4. QUETIAPINE [Concomitant]
     Active Substance: QUETIAPINE
     Indication: DEPRESSION
     Dosage: 50 MG, AT NIGHT
     Route: 048
     Dates: start: 20140811, end: 20140812
  5. TAMSULOSIN [Concomitant]
     Active Substance: TAMSULOSIN
     Indication: BLADDER DISORDER
     Dosage: 0.4 MG, UNK
     Route: 048
     Dates: start: 20140827, end: 20141023

REACTIONS (4)
  - Dystonia [Recovered/Resolved]
  - Choreoathetosis [Recovered/Resolved]
  - Dyskinesia [Recovered/Resolved]
  - Bradykinesia [Recovered/Resolved]

NARRATIVE: CASE EVENT DATE: 20140926
